FAERS Safety Report 24546115 (Version 3)
Quarter: 2025Q3

REPORT INFORMATION
  Report Type: Report from Study
  Country: CA (occurrence: CA)
  Receive Date: 20241024
  Receipt Date: 20250827
  Transmission Date: 20251021
  Serious: Yes (Other)
  Sender: GILEAD
  Company Number: CA-GLAXOSMITHKLINE-CA2023AMR100488

PATIENT
  Age: 77 Year
  Sex: Female

DRUGS (1)
  1. AMBRISENTAN [Suspect]
     Active Substance: AMBRISENTAN
     Indication: Pulmonary arterial hypertension
     Dosage: 10 MG, QD
     Route: 048
     Dates: start: 20130313

REACTIONS (7)
  - Cataract [Unknown]
  - Fibromyalgia [Unknown]
  - Pain [Unknown]
  - Sinusitis [Unknown]
  - Neck pain [Unknown]
  - Pain in extremity [Unknown]
  - Malaise [Unknown]
